FAERS Safety Report 7348874-9 (Version None)
Quarter: 2011Q1

REPORT INFORMATION
  Report Type: 
  Country: None (occurrence: None)
  Receive Date: 20110314
  Receipt Date: 20110302
  Transmission Date: 20110831
  Serious: Yes (Hospitalization, Other)
  Sender: FDA-Public Use
  Company Number: ES-ELI_LILLY_AND_COMPANY-ES201103000853

PATIENT
  Sex: Female
  Weight: 50 kg

DRUGS (8)
  1. NOCTAMID [Concomitant]
     Indication: DEPRESSION
     Dosage: 25 DROPS UNK, DAILY
     Route: 048
  2. GELOCATIL [Concomitant]
     Indication: PAIN
     Dosage: 1 G, PRN
     Route: 048
  3. CALCIUM SANDOZ [Concomitant]
     Indication: OSTEOPOROSIS
     Dosage: UNK, DAILY (1/D)
     Route: 048
  4. SICCAFLUID [Concomitant]
     Indication: EYE DISORDER
     Dosage: 2 DROPS, EVERY 8 HRS
     Route: 047
     Dates: start: 20110209
  5. DEPRELIO [Concomitant]
     Indication: DEPRESSION
     Dosage: 25 MG, DAILY (1/D)
     Route: 048
  6. FORTEO [Suspect]
     Indication: OSTEOPOROSIS
     Dosage: 20 UG, DAILY (1/D)
     Route: 058
     Dates: start: 20100429
  7. TRANKIMAZIN [Concomitant]
     Indication: DEPRESSION
     Dosage: 1.5 1 MG, DAILY (1/D)
     Route: 048
  8. ESERTIA [Concomitant]
     Indication: DEPRESSION
     Dosage: 10 MG, DAILY (1/D)
     Route: 048

REACTIONS (3)
  - BREAST CANCER [None]
  - ANAESTHETIC COMPLICATION [None]
  - BLINDNESS TRANSIENT [None]
